FAERS Safety Report 8057912-X (Version None)
Quarter: 2012Q1

REPORT INFORMATION
  Report Type: 
  Country: None (occurrence: None)
  Receive Date: 20120120
  Receipt Date: 20120110
  Transmission Date: 20120608
  Serious: Yes (Death, Hospitalization, Other)
  Sender: FDA-Public Use
  Company Number: JP-BAXTER-2012BH000898

PATIENT
  Age: 79 Year
  Sex: Female
  Weight: 60 kg

DRUGS (4)
  1. FEIBA [Suspect]
     Route: 042
     Dates: start: 20111025, end: 20111028
  2. FEIBA [Suspect]
     Route: 042
     Dates: start: 20111025, end: 20111028
  3. FEIBA [Suspect]
     Indication: HAEMOSTASIS
     Route: 042
     Dates: start: 20111101, end: 20111104
  4. FEIBA [Suspect]
     Indication: ACQUIRED HAEMOPHILIA
     Route: 042
     Dates: start: 20111101, end: 20111104

REACTIONS (2)
  - DISSEMINATED INTRAVASCULAR COAGULATION [None]
  - CHOLECYSTITIS [None]
